FAERS Safety Report 5524911-9 (Version None)
Quarter: 2007Q4

REPORT INFORMATION
  Report Type: 
  Country: None (occurrence: None)
  Receive Date: 20071119
  Receipt Date: 20071106
  Transmission Date: 20080405
  Serious: Yes (Hospitalization, Other)
  Sender: FDA-Public Use
  Company Number: 2007-02704

PATIENT
  Age: 53 Year
  Sex: Female

DRUGS (16)
  1. VELCADE [Suspect]
     Indication: MULTIPLE MYELOMA
     Dates: start: 20050809, end: 20060922
  2. VELCADE [Suspect]
     Indication: MULTIPLE MYELOMA
     Dates: start: 20061017, end: 20070123
  3. VELCADE [Suspect]
     Indication: MULTIPLE MYELOMA
     Dates: start: 20050301
  4. THALIDOMIDE [Suspect]
     Indication: MULTIPLE MYELOMA
     Dates: start: 20050829, end: 20060922
  5. THALIDOMIDE [Suspect]
     Indication: MULTIPLE MYELOMA
     Dates: start: 20050301
  6. THALIDOMIDE [Suspect]
     Indication: MULTIPLE MYELOMA
     Dates: start: 20061017
  7. DEXAMETHASONE TAB [Suspect]
     Indication: MULTIPLE MYELOMA
     Dates: start: 20050829, end: 20060922
  8. DEXAMETHASONE TAB [Suspect]
     Indication: MULTIPLE MYELOMA
     Dates: end: 20070301
  9. DEXAMETHASONE TAB [Suspect]
     Indication: MULTIPLE MYELOMA
     Dates: start: 20050301
  10. DEXAMETHASONE TAB [Suspect]
     Indication: MULTIPLE MYELOMA
     Dates: start: 20061017
  11. VINCRISTINE [Suspect]
     Indication: MULTIPLE MYELOMA
  12. GEMCITABINE [Suspect]
     Indication: MULTIPLE MYELOMA
  13. MELPHALAN(MELPHALAN) [Suspect]
     Indication: MULTIPLE MYELOMA
     Dosage: 200.00 MG/M2
  14. FAMVIR [Concomitant]
  15. AMBISOME [Concomitant]
  16. AREDIA [Concomitant]

REACTIONS (13)
  - ACUTE MYELOID LEUKAEMIA [None]
  - ANAEMIA MACROCYTIC [None]
  - BRONCHITIS [None]
  - DRUG TOXICITY [None]
  - FACE INJURY [None]
  - HAEMORRHAGE INTRACRANIAL [None]
  - MYELODYSPLASTIC SYNDROME [None]
  - NAUSEA [None]
  - PANCYTOPENIA [None]
  - SINUSITIS [None]
  - STAPHYLOCOCCAL BACTERAEMIA [None]
  - STEM CELL TRANSPLANT [None]
  - UPPER RESPIRATORY TRACT INFECTION [None]
